FAERS Safety Report 6528536-8 (Version None)
Quarter: 2009Q4

REPORT INFORMATION
  Report Type: 
  Country: None (occurrence: None)
  Receive Date: 20091222
  Receipt Date: 20090824
  Transmission Date: 20100525
  Serious: No
  Sender: FDA-Public Use
  Company Number: ALL1-2009-02448

PATIENT
  Age: 14 Year
  Sex: Female

DRUGS (1)
  1. VYVANSE [Suspect]
     Indication: ATTENTION DEFICIT/HYPERACTIVITY DISORDER
     Dosage: 50 MG, 1X/DAY;QD, ORAL
     Route: 048
     Dates: start: 20090820, end: 20090820

REACTIONS (3)
  - EYELID OEDEMA [None]
  - OFF LABEL USE [None]
  - URTICARIA [None]
